FAERS Safety Report 6866748-4 (Version None)
Quarter: 2010Q3

REPORT INFORMATION
  Report Type: 
  Country: None (occurrence: None)
  Receive Date: 20100722
  Receipt Date: 20100715
  Transmission Date: 20110219
  Serious: Yes (Other)
  Sender: FDA-Public Use
  Company Number: PHHO2010GB10901

PATIENT
  Sex: Male
  Weight: 99.8 kg

DRUGS (5)
  1. ZOLEDRONIC ACID [Suspect]
     Indication: METASTATIC RENAL CELL CARCINOMA
     Dosage: UNK
     Dates: start: 20061020
  2. SUNITINIB MALATE [Concomitant]
     Indication: METASTATIC RENAL CELL CARCINOMA
     Dosage: 50MG, 1X/DAY
     Route: 048
     Dates: start: 20060403
  3. LANSOPRAZOLE [Concomitant]
  4. EPADERM [Concomitant]
  5. EUMOVATE [Concomitant]

REACTIONS (3)
  - GINGIVAL DISORDER [None]
  - ORAL TOXICITY [None]
  - OSTEONECROSIS OF JAW [None]
